FAERS Safety Report 10239093 (Version 1)
Quarter: 2014Q2

REPORT INFORMATION
  Report Type: Spontaneous
  Country: US (occurrence: US)
  Receive Date: 20140616
  Receipt Date: 20140616
  Transmission Date: 20141212
  Serious: Yes (Other)
  Sender: FDA-Public Use
  Company Number: US-PFIZER INC-2014163929

PATIENT
  Age: 55 Year
  Sex: Male
  Weight: 93 kg

DRUGS (3)
  1. ARTHROTEC [Suspect]
     Indication: PERIARTHRITIS
     Dosage: TWO TIMES A DAY
     Dates: start: 2014
  2. ARTHROTEC [Suspect]
     Indication: OSTEOARTHRITIS
  3. HYDROCODONE [Concomitant]
     Dosage: UNK

REACTIONS (2)
  - Road traffic accident [Unknown]
  - Musculoskeletal discomfort [Unknown]
